FAERS Safety Report 11275144 (Version 3)
Quarter: 2015Q3

REPORT INFORMATION
  Report Type: Spontaneous
  Country: PR (occurrence: PR)
  Receive Date: 20150716
  Receipt Date: 20150806
  Transmission Date: 20151125
  Serious: Yes (Death, Congenital Anomaly)
  Sender: FDA-Public Use
  Company Number: PR-009507513-1507PER007282

PATIENT
  Sex: Male
  Weight: .08 kg

DRUGS (3)
  1. RALTEGRAVIR POTASSIUM [Suspect]
     Active Substance: RALTEGRAVIR POTASSIUM
     Dosage: 800 MG, QD
     Route: 064
  2. TRUVADA [Suspect]
     Active Substance: EMTRICITABINE\TENOFOVIR DISOPROXIL FUMARATE
     Dosage: 1 TAB/CAPS, QD
     Route: 064
  3. INTELENCE [Suspect]
     Active Substance: ETRAVIRINE
     Dosage: 400 MG, QD
     Route: 064

REACTIONS (3)
  - Encephalocele [Fatal]
  - Foetal exposure during pregnancy [Recovered/Resolved]
  - Single umbilical artery [Fatal]
